FAERS Safety Report 19355444 (Version 1)
Quarter: 2021Q2

REPORT INFORMATION
  Report Type: Other
  Country: CN (occurrence: CN)
  Receive Date: 20210601
  Receipt Date: 20210601
  Transmission Date: 20210717
  Serious: Yes (Other)
  Sender: FDA-Public Use
  Company Number: CN-ROCHE-2836124

PATIENT

DRUGS (2)
  1. FULVESTRANT INJECTION [Suspect]
     Active Substance: FULVESTRANT
     Indication: HER2 POSITIVE BREAST CANCER
     Dosage: FOR 6 MONTHS
     Route: 065
  2. TRASTUZUMAB. [Suspect]
     Active Substance: TRASTUZUMAB
     Indication: HER2 POSITIVE BREAST CANCER
     Dosage: INITIAL DOSE WAS CALCULATED AS 8 MG/KG AND ADMINISTERED, WHICH WAS INTRAVENOUSLY INFUSED WITHIN 90 M
     Route: 042

REACTIONS (5)
  - Drug ineffective [Unknown]
  - Myelosuppression [Unknown]
  - Asthenia [Unknown]
  - Nausea [Unknown]
  - Platelet count decreased [Unknown]
